FAERS Safety Report 25795833 (Version 3)
Quarter: 2025Q3

REPORT INFORMATION
  Report Type: Spontaneous
  Country: EU (occurrence: EU)
  Receive Date: 20250912
  Receipt Date: 20250923
  Transmission Date: 20251021
  Serious: Yes (Death, Hospitalization, Other)
  Sender: INCYTE
  Company Number: EU-002147023-NVSC2025FR103358

PATIENT
  Age: 35 Year

DRUGS (12)
  1. RUXOLITINIB [Suspect]
     Active Substance: RUXOLITINIB
     Indication: Product used for unknown indication
     Route: 065
  2. CYCLOSPORINE [Suspect]
     Active Substance: CYCLOSPORINE
     Indication: Prophylaxis against graft versus host disease
  3. THIOTEPA [Concomitant]
     Active Substance: THIOTEPA
     Indication: Product used for unknown indication
  4. FLUDARABINE [Concomitant]
     Active Substance: FLUDARABINE PHOSPHATE
     Indication: Product used for unknown indication
  5. BUSULFAN [Concomitant]
     Active Substance: BUSULFAN
     Indication: Product used for unknown indication
     Route: 065
  6. CYCLOPHOSPHAMIDE [Concomitant]
     Active Substance: CYCLOPHOSPHAMIDE
     Indication: Product used for unknown indication
     Route: 065
  7. THYMOGLOBULINE [Concomitant]
     Active Substance: LAPINE T-LYMPHOCYTE IMMUNE GLOBULIN
     Indication: Product used for unknown indication
  8. MYCOPHENOLATE MOFETIL HYDROCHLORIDE [Concomitant]
     Active Substance: MYCOPHENOLATE MOFETIL HYDROCHLORIDE
     Indication: Product used for unknown indication
     Route: 065
  9. METHOTREXATE [Concomitant]
     Active Substance: METHOTREXATE
     Indication: Product used for unknown indication
  10. METHOTREXATE [Concomitant]
     Active Substance: METHOTREXATE
  11. METHOTREXATE [Concomitant]
     Active Substance: METHOTREXATE
  12. TACROLIMUS [Concomitant]
     Active Substance: TACROLIMUS
     Indication: Product used for unknown indication
     Route: 065

REACTIONS (9)
  - Purpura fulminans [Fatal]
  - Malabsorption [Unknown]
  - Pneumococcal sepsis [Fatal]
  - Septic shock [Fatal]
  - Graft versus host disease in skin [Unknown]
  - Graft versus host disease in gastrointestinal tract [Unknown]
  - Graft versus host disease in lung [Unknown]
  - Asthenia [Unknown]
  - Fatigue [Unknown]
